FAERS Safety Report 5900976-7 (Version None)
Quarter: 2008Q3

REPORT INFORMATION
  Report Type: 
  Country: None (occurrence: None)
  Receive Date: 20080924
  Receipt Date: 20080911
  Transmission Date: 20090109
  Serious: Yes (Hospitalization, Other)
  Sender: FDA-Public Use
  Company Number: GXKR2008DE08734

PATIENT
  Age: 60 Year
  Sex: Female

DRUGS (2)
  1. CITALOPRAM HYDROBROMIDE [Suspect]
     Indication: DEPRESSION
     Dosage: SEE IMAGE
  2. HERBAL EXTRACTS NOS (NO INGREDIENTS/SUBSTANCES) [Suspect]
     Indication: DYSPEPSIA

REACTIONS (9)
  - ABDOMINAL PAIN [None]
  - ANHEDONIA [None]
  - ANXIETY [None]
  - APATHY [None]
  - COGNITIVE DISORDER [None]
  - DEPRESSION [None]
  - DRUG INTERACTION [None]
  - DYSPEPSIA [None]
  - INSOMNIA [None]
